FAERS Safety Report 6561586-4 (Version None)
Quarter: 2010Q1

REPORT INFORMATION
  Report Type: 
  Country: None (occurrence: None)
  Receive Date: 20100130
  Receipt Date: 20091021
  Transmission Date: 20100710
  Serious: No
  Sender: FDA-Public Use
  Company Number: US-ABBOTT-09P-163-0604296-00

PATIENT
  Sex: Female
  Weight: 52.21 kg

DRUGS (1)
  1. HUMIRA [Suspect]
     Indication: CROHN'S DISEASE
     Dosage: DAY 1
     Dates: start: 20091010

REACTIONS (7)
  - CHILLS [None]
  - COUGH [None]
  - HEADACHE [None]
  - HOT FLUSH [None]
  - INFLUENZA [None]
  - NASAL CONGESTION [None]
  - PAIN [None]
